FAERS Safety Report 25570904 (Version 2)
Quarter: 2025Q3

REPORT INFORMATION
  Report Type: Spontaneous
  Country: US (occurrence: US)
  Receive Date: 20250717
  Receipt Date: 20250723
  Transmission Date: 20251020
  Serious: Yes (Other)
  Sender: ORGANON
  Company Number: US-ORGANON-O2507USA001018

PATIENT
  Sex: Female

DRUGS (1)
  1. NEXPLANON [Suspect]
     Active Substance: ETONOGESTREL
     Indication: Contraception
     Route: 059
     Dates: start: 20240516, end: 20250702

REACTIONS (8)
  - Heavy menstrual bleeding [Unknown]
  - Device breakage [Recovered/Resolved]
  - Hypoaesthesia [Unknown]
  - Implant site pain [Unknown]
  - Fatigue [Unknown]
  - Nausea [Unknown]
  - Intermenstrual bleeding [Unknown]
  - Abdominal pain [Unknown]

NARRATIVE: CASE EVENT DATE: 20240701
